FAERS Safety Report 8080592 (Version 8)
Quarter: 2013Q2

REPORT INFORMATION
  Report Type: Report from Study
  Country: JP (occurrence: JP)
  Receive Date: 20110808
  Receipt Date: 20130426
  Transmission Date: 20140414
  Serious: Yes (Death, Hospitalization, Other)
  Sender: FDA-Public Use
  Company Number: PHHY2011JP69322

PATIENT
  Age: 68 Year
  Sex: Male
  Weight: 63 kg

DRUGS (13)
  1. AFINITOR [Suspect]
     Indication: METASTATIC RENAL CELL CARCINOMA
     Dosage: 10 MG, DAILY
     Route: 048
     Dates: start: 20110514, end: 20110824
  2. LASIX [Concomitant]
     Indication: METASTATIC RENAL CELL CARCINOMA
     Dosage: 10 MG
     Route: 048
     Dates: start: 20110512
  3. LASIX [Concomitant]
     Dosage: 20 MG
     Dates: end: 20110824
  4. HYPEN [Concomitant]
     Indication: METASTATIC RENAL CELL CARCINOMA
     Dosage: 400 MG
     Route: 048
     Dates: start: 20110603, end: 20111006
  5. CYTOTEC [Concomitant]
     Indication: METASTATIC RENAL CELL CARCINOMA
     Dosage: 400 UG, UNK
     Route: 048
     Dates: start: 20110603, end: 20111006
  6. HALCION [Concomitant]
     Dosage: 0.25 MG, UNK
     Route: 048
     Dates: end: 20111006
  7. ELTACIN [Concomitant]
     Dates: start: 20110610
  8. EVIPROSTAT [Concomitant]
     Indication: METASTATIC RENAL CELL CARCINOMA
     Route: 048
     Dates: start: 20110812, end: 20111003
  9. FLIVAS [Concomitant]
     Indication: METASTATIC RENAL CELL CARCINOMA
     Dosage: 25 MG
     Route: 048
     Dates: start: 20110812, end: 20111003
  10. SENNOSIDE [Concomitant]
     Indication: METASTATIC RENAL CELL CARCINOMA
     Dosage: 24 MG, UNK
     Route: 048
     Dates: start: 20111003, end: 20111006
  11. OXYCONTIN [Concomitant]
     Indication: METASTATIC RENAL CELL CARCINOMA
     Dosage: 10 MG
     Route: 048
     Dates: start: 20111003, end: 20111006
  12. NOVAMIN [Concomitant]
     Indication: METASTATIC RENAL CELL CARCINOMA
     Dosage: 15 MG
     Route: 048
     Dates: start: 20111003, end: 20111006
  13. SUNITINIB MALATE [Concomitant]
     Indication: METASTATIC RENAL CELL CARCINOMA
     Dosage: 25 MG
     Route: 048
     Dates: start: 20110330, end: 20110506

REACTIONS (5)
  - Malignant neoplasm progression [Fatal]
  - C-reactive protein increased [Not Recovered/Not Resolved]
  - Cellulitis [Not Recovered/Not Resolved]
  - Neutrophil count decreased [Recovering/Resolving]
  - Hyperglycaemia [Unknown]
